FAERS Safety Report 5299158-4 (Version None)
Quarter: 2007Q2

REPORT INFORMATION
  Report Type: 
  Country: None (occurrence: None)
  Receive Date: 20070417
  Receipt Date: 20070403
  Transmission Date: 20071010
  Serious: Yes (Life-Threatening, Hospitalization, Other)
  Sender: FDA-Public Use
  Company Number: FR-BAYER-200710260BFR

PATIENT
  Age: 75 Year
  Sex: Male
  Weight: 85 kg

DRUGS (7)
  1. NEXAVAR [Suspect]
     Indication: RENAL CELL CARCINOMA STAGE UNSPECIFIED
     Dosage: TOTAL DAILY DOSE: 800 MG  UNIT DOSE: 200 MG
     Route: 048
     Dates: start: 20061226, end: 20070114
  2. NEXAVAR [Suspect]
     Dosage: TOTAL DAILY DOSE: 800 MG  UNIT DOSE: 200 MG
     Route: 048
     Dates: start: 20070118
  3. NEXAVAR [Suspect]
     Dosage: AS USED: 400 MG  UNIT DOSE: 200 MG
     Route: 048
     Dates: start: 20070215, end: 20070223
  4. NEXAVAR [Suspect]
     Dosage: AS USED: 400 MG  UNIT DOSE: 200 MG
     Route: 048
     Dates: start: 20070316, end: 20070328
  5. ZOMETA [Concomitant]
     Indication: UNEVALUABLE EVENT
     Dates: start: 20061222
  6. NEURONTIN [Concomitant]
     Indication: UNEVALUABLE EVENT
  7. CORTANCYL [Concomitant]
     Indication: UNEVALUABLE EVENT

REACTIONS (4)
  - CHOLESTASIS [None]
  - EPILEPSY [None]
  - MONOPARESIS [None]
  - RASH [None]
